FAERS Safety Report 9036740 (Version 1)
Quarter: 2013Q1

REPORT INFORMATION
  Report Type: Spontaneous
  Country: US (occurrence: None)
  Receive Date: 20130118
  Receipt Date: 20130118
  Transmission Date: 20140127
  Serious: No
  Sender: FDA-Public Use
  Company Number: None

PATIENT
  Age: 66 Year
  Sex: Female

DRUGS (17)
  1. AZATHIOPRINE [Suspect]
     Dates: start: 20110428, end: 20110611
  2. ALLEGRA [Concomitant]
  3. ASPIRIN [Concomitant]
  4. CALCIUM 600 + D(3) [Concomitant]
  5. COQ10-VIT B1-B6-C-MAG-ZINC [Concomitant]
  6. ENTOCORT [Concomitant]
  7. MULTIVITAMIN [Concomitant]
  8. OMEGA 3 KRILL OIL [Concomitant]
  9. OMEPRAZOLE [Concomitant]
  10. VICODIN [Concomitant]
  11. VITAMIN B-12 [Concomitant]
  12. VITAMIN D-3 [Concomitant]
  13. ZOLPIDEM [Concomitant]
  14. CITALOPRAM [Concomitant]
  15. FLUTICASONE [Concomitant]
  16. HYDROCHLOROTHIAZIDE [Concomitant]
  17. METOPROLOL SUCCINATE [Concomitant]

REACTIONS (5)
  - Drug-induced liver injury [None]
  - Nausea [None]
  - Blood alkaline phosphatase increased [None]
  - Aspartate aminotransferase increased [None]
  - Alanine aminotransferase increased [None]
